FAERS Safety Report 5252965-6 (Version None)
Quarter: 2007Q1

REPORT INFORMATION
  Report Type: 
  Country: None (occurrence: None)
  Receive Date: 20070301
  Receipt Date: 20070219
  Transmission Date: 20070707
  Serious: Yes (Hospitalization)
  Sender: FDA-Public Use
  Company Number: JP-ROCHE-478433

PATIENT
  Age: 64 Year
  Sex: Female
  Weight: 62 kg

DRUGS (5)
  1. PERDIPINE [Suspect]
     Indication: HYPERTENSION
     Route: 048
     Dates: start: 20060309, end: 20070106
  2. LIPITOR [Suspect]
     Indication: HYPERCHOLESTEROLAEMIA
     Dosage: DOSAGE REGIMEN REPORTED AS 10 MG, UID/QD.
     Route: 048
     Dates: start: 20060704, end: 20070106
  3. MUCOSTA [Concomitant]
     Route: 048
     Dates: start: 20060418, end: 20070106
  4. TOUGHMAC E [Concomitant]
     Dosage: DRUG REPORTED AS TOUGHMAC E (ENZYMES NOS).
     Route: 048
     Dates: start: 20060418, end: 20070106
  5. TAKEPRON [Concomitant]
     Dates: start: 20060418, end: 20070106

REACTIONS (3)
  - ERYTHEMA MULTIFORME [None]
  - HEPATIC FUNCTION ABNORMAL [None]
  - PURPURA [None]
